FAERS Safety Report 4443709-6 (Version None)
Quarter: 2004Q3

REPORT INFORMATION
  Report Type: 
  Country: None (occurrence: None)
  Receive Date: 20040908
  Receipt Date: 20040902
  Transmission Date: 20050211
  Serious: Yes (Hospitalization)
  Sender: FDA-Public Use
  Company Number: PHRM2004FR02687

PATIENT
  Age: 79 Year
  Sex: Female

DRUGS (6)
  1. ESIDRIX [Suspect]
     Indication: ESSENTIAL HYPERTENSION
     Dosage: 25 MG, QD
     Route: 048
     Dates: end: 20040727
  2. MODOPAR [Concomitant]
     Indication: PARKINSON'S DISEASE
     Dosage: 125 MG, QID
     Route: 048
  3. APROVEL [Concomitant]
     Indication: ESSENTIAL HYPERTENSION
     Dosage: 300 MG, QD
     Route: 048
  4. REQUIP [Concomitant]
     Indication: PARKINSON'S DISEASE
     Dosage: 1 MG, QID
     Route: 048
  5. SOTALOL HCL [Concomitant]
     Dosage: 80 MG, BID
     Route: 048
  6. NIFEDIPINE [Concomitant]
     Indication: ESSENTIAL HYPERTENSION
     Dosage: 30 MG, QD
     Route: 048

REACTIONS (3)
  - AKINESIA [None]
  - FALL [None]
  - HYPONATRAEMIA [None]
